FAERS Safety Report 10531689 (Version 1)
Quarter: 2014Q4

REPORT INFORMATION
  Report Type: Report from Study
  Country: US (occurrence: US)
  Receive Date: 20141021
  Receipt Date: 20141021
  Transmission Date: 20150529
  Serious: Yes (Hospitalization)
  Sender: FDA-Public Use
  Company Number: US-EXELIXIS-CABO-14004860

PATIENT
  Sex: Male
  Weight: 86.64 kg

DRUGS (1)
  1. CABOZANTINIB [Suspect]
     Active Substance: CABOZANTINIB
     Indication: RENAL CANCER
     Dosage: 60 MG, QD
     Route: 048
     Dates: start: 20141011, end: 20141016

REACTIONS (4)
  - Renal disorder [Unknown]
  - Haematuria [Unknown]
  - Off label use [Unknown]
  - Dysuria [Unknown]
